FAERS Safety Report 10032605 (Version 2)
Quarter: 2014Q3

REPORT INFORMATION
  Report Type: Spontaneous
  Country: IT (occurrence: IT)
  Receive Date: 20140324
  Receipt Date: 20140708
  Transmission Date: 20150326
  Serious: Yes (Hospitalization)
  Sender: FDA-Public Use
  Company Number: IT-SA-2014SA032085

PATIENT
  Age: 53 Year
  Sex: Male

DRUGS (7)
  1. RIFAXIMIN [Concomitant]
     Active Substance: RIFAXIMIN
     Route: 048
     Dates: start: 20120101, end: 20140226
  2. INDERAL [Concomitant]
     Active Substance: PROPRANOLOL HYDROCHLORIDE
     Route: 048
     Dates: start: 20120101, end: 20140226
  3. MAG 2 [Concomitant]
     Active Substance: MAGNESIUM CHLORIDE
     Route: 048
     Dates: start: 20120101, end: 20140226
  4. FUROSEMIDE. [Suspect]
     Active Substance: FUROSEMIDE
     Indication: ASCITES
     Route: 048
     Dates: start: 20120101, end: 20140228
  5. LANSOPRAZOLE. [Concomitant]
     Active Substance: LANSOPRAZOLE
     Route: 048
     Dates: start: 20120101, end: 20140226
  6. LAEVOLAC EPS [Concomitant]
     Route: 048
     Dates: start: 20120101, end: 20140226
  7. ALDACTONE [Suspect]
     Active Substance: SPIRONOLACTONE
     Indication: ASCITES
     Route: 048
     Dates: start: 20120101, end: 20140228

REACTIONS (3)
  - Dehydration [Recovering/Resolving]
  - Hepatic encephalopathy [Recovering/Resolving]
  - Renal failure acute [Recovering/Resolving]

NARRATIVE: CASE EVENT DATE: 20140227
